FAERS Safety Report 4518288-5 (Version None)
Quarter: 2004Q4

REPORT INFORMATION
  Report Type: 
  Country: None (occurrence: None)
  Receive Date: 20041130
  Receipt Date: 20041116
  Transmission Date: 20050328
  Serious: Yes (Hospitalization)
  Sender: FDA-Public Use
  Company Number: 2004-BP-11922BP

PATIENT

DRUGS (1)
  1. FLOMAX [Suspect]
     Dosage: PO
     Route: 048

REACTIONS (1)
  - MEDICAL DEVICE COMPLICATION [None]
